FAERS Safety Report 6074799-5 (Version None)
Quarter: 2009Q1

REPORT INFORMATION
  Report Type: 
  Country: None (occurrence: None)
  Receive Date: 20090212
  Receipt Date: 20090206
  Transmission Date: 20090719
  Serious: Yes (Other)
  Sender: FDA-Public Use
  Company Number: US-BAYER-200840163NA

PATIENT
  Age: 64 Year
  Sex: Male
  Weight: 95 kg

DRUGS (4)
  1. LEVITRA [Suspect]
     Indication: ERECTILE DYSFUNCTION
     Dosage: TOTAL DAILY DOSE: 20 MG  UNIT DOSE: 20 MG
     Route: 048
     Dates: start: 20080401
  2. VYTORIN [Concomitant]
  3. BENAZEPRIL [Concomitant]
     Dosage: TOTAL DAILY DOSE: 20 MG
  4. VITAMINS [Concomitant]

REACTIONS (2)
  - DEAFNESS UNILATERAL [None]
  - TINNITUS [None]
